FAERS Safety Report 5198684-6 (Version None)
Quarter: 2007Q1

REPORT INFORMATION
  Report Type: 
  Country: None (occurrence: None)
  Receive Date: 20070104
  Receipt Date: 20061227
  Transmission Date: 20070707
  Serious: Yes (Other)
  Sender: FDA-Public Use
  Company Number: US-SANOFI-SYNTHELABO-F01200602566

PATIENT
  Sex: Male

DRUGS (2)
  1. OXALIPLATIN [Suspect]
     Indication: COLON CANCER
     Dosage: 130 MG/M2
     Route: 042
     Dates: start: 20040511, end: 20040511
  2. CAPECITABINE [Suspect]
     Dosage: 1000 MG/M2 TWICE A DAY PER ORAL FROM D1 TO D14
     Route: 048
     Dates: start: 20040501, end: 20040525

REACTIONS (1)
  - CHRONIC MYELOMONOCYTIC LEUKAEMIA [None]
